FAERS Safety Report 5472986-8 (Version None)
Quarter: 2007Q3

REPORT INFORMATION
  Report Type: 
  Country: None (occurrence: None)
  Receive Date: 20070927
  Receipt Date: 20070912
  Transmission Date: 20080115
  Serious: Yes (Hospitalization)
  Sender: FDA-Public Use
  Company Number: 2007JP004386

PATIENT
  Age: 48 Year
  Sex: Female

DRUGS (3)
  1. FUNGUARD(MICAFUNGIN INJECTION) [Suspect]
     Indication: FUNGAL INFECTION
     Dosage: 150 MG, /D, IV DRIP
     Route: 041
     Dates: start: 20070829, end: 20070903
  2. SULPERASON (CEFOPERAZONE, SULBACTAM) [Concomitant]
  3. AVELOX [Concomitant]

REACTIONS (1)
  - CARDIAC FAILURE [None]
